FAERS Safety Report 16843567 (Version 1)
Quarter: 2019Q3

REPORT INFORMATION
  Report Type: Spontaneous
  Country: US (occurrence: US)
  Receive Date: 20190924
  Receipt Date: 20190924
  Transmission Date: 20191005
  Serious: Yes (Other)
  Sender: FDA-Public Use
  Company Number: US-LUPIN PHARMACEUTICALS INC.-2019-06111

PATIENT
  Sex: Male
  Weight: 121.54 kg

DRUGS (2)
  1. LISINOPRIL TABLETS USP, 10MG [Suspect]
     Active Substance: LISINOPRIL
     Dosage: 10 MILLIGRAM, QD (START ABOUT 1 MONTH AFTER HIS SURGERY)
     Route: 048
     Dates: start: 2009
  2. LISINOPRIL TABLETS USP, 10MG [Suspect]
     Active Substance: LISINOPRIL
     Indication: BLOOD PRESSURE ABNORMAL
     Dosage: 10 MILLIGRAM, QD (STOPPED BEFORE HIS HEART SURGERY IN 2009)
     Route: 048
     Dates: start: 1994, end: 2009

REACTIONS (12)
  - Tympanic membrane perforation [Recovered/Resolved]
  - Dry mouth [Not Recovered/Not Resolved]
  - Post-traumatic stress disorder [Not Recovered/Not Resolved]
  - Ear infection [Recovered/Resolved]
  - Metamorphopsia [Not Recovered/Not Resolved]
  - Heart rate increased [Recovered/Resolved]
  - Diabetes mellitus [Not Recovered/Not Resolved]
  - Tinnitus [Not Recovered/Not Resolved]
  - Road traffic accident [Unknown]
  - Erectile dysfunction [Not Recovered/Not Resolved]
  - Fatigue [Not Recovered/Not Resolved]
  - Vision blurred [Not Recovered/Not Resolved]

NARRATIVE: CASE EVENT DATE: 1994
